FAERS Safety Report 10533195 (Version 2)
Quarter: 2014Q4

REPORT INFORMATION
  Report Type: Spontaneous
  Country: FR (occurrence: FR)
  Receive Date: 20141022
  Receipt Date: 20141022
  Transmission Date: 20150529
  Serious: Yes (Hospitalization)
  Sender: FDA-Public Use
  Company Number: FR-ACCORD-026578

PATIENT
  Age: 44 Year
  Sex: Male

DRUGS (6)
  1. CYAMEMAZINE/CYAMEMAZINE TARTRATE [Suspect]
     Active Substance: CYAMEMAZINE
     Indication: SCHIZOPHRENIA SIMPLE
     Dosage: STARTED WITH 75 MG/D THEN INCREASED TO 200 MG/D AND FURTHER INCREASED TO 450 MG/D.
  2. QUETIAPINE [Suspect]
     Active Substance: QUETIAPINE
     Indication: SCHIZOPHRENIA SIMPLE
     Dosage: STARTED WITH 150 MG/D, THEN INCREASED TO 300 MG/D AND FURTHER INCREASED TO 600 MG/D.
  3. ESTAZOLAM. [Concomitant]
     Active Substance: ESTAZOLAM
  4. TROPATEPINE/TROPATEPINE HYDROCHLORIDE [Suspect]
     Active Substance: TROPATEPINE HYDROCHLORIDE
     Indication: MUSCLE SPASMS
  5. DIAZEPAM. [Concomitant]
     Active Substance: DIAZEPAM
  6. ALPRAZOLAM. [Concomitant]
     Active Substance: ALPRAZOLAM

REACTIONS (10)
  - Septic shock [Recovering/Resolving]
  - Asthenia [None]
  - Pallor [None]
  - General physical health deterioration [None]
  - Flatulence [None]
  - Hyperthermia [None]
  - Muscle spasms [Unknown]
  - Hypovolaemic shock [None]
  - Bacterial infection [None]
  - Necrotising colitis [Recovering/Resolving]
